FAERS Safety Report 6498051-9 (Version None)
Quarter: 2009Q4

REPORT INFORMATION
  Report Type: 
  Country: None (occurrence: None)
  Receive Date: 20091215
  Receipt Date: 20091211
  Transmission Date: 20100525
  Serious: Yes (Death)
  Sender: FDA-Public Use
  Company Number: PHEH2009US17477

PATIENT
  Sex: Male
  Weight: 77.098 kg

DRUGS (1)
  1. EXJADE [Suspect]
     Indication: REFRACTORY ANAEMIA
     Dosage: 500 MG, BID
     Route: 048
     Dates: end: 20090801

REACTIONS (1)
  - ACUTE LEUKAEMIA [None]
